FAERS Safety Report 14182865 (Version 1)
Quarter: 2017Q4

REPORT INFORMATION
  Report Type: Spontaneous
  Country: US (occurrence: US)
  Receive Date: 20171113
  Receipt Date: 20171113
  Transmission Date: 20180321
  Serious: No
  Sender: FDA-Public Use
  Company Number: US-GLAXOSMITHKLINE-US2017171055

PATIENT
  Age: 72 Year
  Sex: Female

DRUGS (3)
  1. ANORO ELLIPTA [Suspect]
     Active Substance: UMECLIDINIUM BROMIDE\VILANTEROL TRIFENATATE
     Indication: TOTAL LUNG CAPACITY DECREASED
     Dosage: 1 PUFF(S), 1D
     Route: 055
     Dates: start: 201710
  2. METOPROLOL. [Concomitant]
     Active Substance: METOPROLOL
  3. ANORO ELLIPTA [Suspect]
     Active Substance: UMECLIDINIUM BROMIDE\VILANTEROL TRIFENATATE
     Indication: BRONCHITIS

REACTIONS (4)
  - Drug dose omission [Unknown]
  - Hypervigilance [Recovered/Resolved]
  - Feeling jittery [Recovered/Resolved]
  - Wrong technique in device usage process [Recovering/Resolving]

NARRATIVE: CASE EVENT DATE: 201710
